FAERS Safety Report 5562390-6 (Version None)
Quarter: 2007Q4

REPORT INFORMATION
  Report Type: 
  Country: None (occurrence: None)
  Receive Date: 20071215
  Receipt Date: 20070618
  Transmission Date: 20080405
  Serious: Yes (Other)
  Sender: FDA-Public Use
  Company Number: US-AMGEN-US220197

PATIENT
  Sex: Male
  Weight: 116.2 kg

DRUGS (13)
  1. ARANESP [Suspect]
     Indication: ANAEMIA OF MALIGNANT DISEASE
     Route: 058
     Dates: start: 20061221, end: 20070416
  2. IRINOTECAN HCL [Concomitant]
     Dates: start: 20061211
  3. VEPESID [Concomitant]
     Dates: start: 20061211
  4. CISPLATIN [Concomitant]
     Dates: start: 20061211
  5. VITAMIN CAP [Concomitant]
     Route: 048
  6. COUMADIN [Concomitant]
     Route: 048
  7. HALCION [Concomitant]
     Route: 048
  8. LASIX [Concomitant]
     Route: 048
  9. HYZAAR [Concomitant]
     Route: 048
  10. CELEBREX [Concomitant]
     Route: 048
  11. CIALIS [Concomitant]
  12. PERCOCET [Concomitant]
     Route: 048
  13. BACTRIM DS [Concomitant]
     Route: 048

REACTIONS (2)
  - ANAEMIA [None]
  - PNEUMONIA [None]
